FAERS Safety Report 5222920-0 (Version None)
Quarter: 2007Q1

REPORT INFORMATION
  Report Type: 
  Country: None (occurrence: None)
  Receive Date: 20070129
  Receipt Date: 20070117
  Transmission Date: 20070707
  Serious: Yes (Disabling, Other)
  Sender: FDA-Public Use
  Company Number: US-PFIZER INC-2005109544

PATIENT
  Sex: Male
  Weight: 72.6 kg

DRUGS (21)
  1. VFEND [Suspect]
     Indication: BRONCHOPULMONARY ASPERGILLOSIS
     Dosage: FREQ:UNKNOWN
     Route: 065
     Dates: start: 20041001, end: 20050101
  2. NEURONTIN [Suspect]
     Indication: NEUROPATHY
     Dates: start: 20040101, end: 20040101
  3. ACCOLATE [Concomitant]
     Route: 065
  4. ATIVAN [Concomitant]
     Dosage: FREQ:AS NEEDED
     Route: 065
  5. ATROVENT [Concomitant]
     Route: 065
  6. ATROVENT [Concomitant]
     Route: 055
  7. BRETHINE [Concomitant]
     Dosage: FREQ:AS NEEDED
     Route: 065
  8. CELEXA [Concomitant]
     Route: 065
  9. MEDROL [Concomitant]
     Route: 065
  10. MIACALCIN [Concomitant]
     Route: 055
  11. MUCINEX [Concomitant]
     Route: 065
  12. NEXIUM [Concomitant]
     Route: 065
  13. OSCAL 500-D [Concomitant]
     Route: 065
  14. PULMICORT [Concomitant]
     Route: 065
  15. THEOPHYLLINE [Concomitant]
     Route: 065
  16. VENTOLIN [Concomitant]
     Route: 065
  17. DEMADEX [Concomitant]
     Dosage: FREQ:AS NEEDED
     Route: 065
  18. DARVOCET-N 100 [Concomitant]
     Indication: PAIN
     Dosage: FREQ:AS NEEDED
     Route: 065
  19. ANTIBIOTICS [Concomitant]
     Route: 065
  20. SOLU-MEDROL [Concomitant]
  21. AMINOPHYLLINE [Concomitant]

REACTIONS (13)
  - ABASIA [None]
  - ALOPECIA [None]
  - BLOOD PRESSURE INCREASED [None]
  - BRONCHITIS [None]
  - COUGH [None]
  - DYSPEPSIA [None]
  - GASTROINTESTINAL DISORDER [None]
  - NEUROPATHY [None]
  - PHOTOPHOBIA [None]
  - SWELLING [None]
  - TACHYCARDIA [None]
  - WEIGHT DECREASED [None]
  - WHEELCHAIR USER [None]
